FAERS Safety Report 4823168-1 (Version None)
Quarter: 2005Q4

REPORT INFORMATION
  Report Type: 
  Country: None (occurrence: None)
  Receive Date: 20051027
  Receipt Date: 20040929
  Transmission Date: 20060501
  Serious: Yes (Hospitalization, Other)
  Sender: FDA-Public Use
  Company Number: HQWYE458430SEP04

PATIENT
  Age: 61 Year
  Sex: Female
  Weight: 86.26 kg

DRUGS (3)
  1. PREMARIN [Suspect]
     Indication: MENOPAUSE
     Dosage: 0.625 MG, ORAL
     Route: 048
     Dates: start: 19890101, end: 19970101
  2. ESTRACE [Suspect]
     Indication: MENOPAUSE
     Dosage: CREEM AND PILL
     Dates: start: 19970101, end: 20050101
  3. PROVERA [Suspect]
     Indication: MENOPAUSE
     Dosage: ORAL
     Route: 048
     Dates: start: 19890101, end: 20010101

REACTIONS (1)
  - BREAST CANCER [None]
